FAERS Safety Report 6750097-9 (Version None)
Quarter: 2010Q2

REPORT INFORMATION
  Report Type: 
  Country: None (occurrence: None)
  Receive Date: 20100601
  Receipt Date: 20100519
  Transmission Date: 20101027
  Serious: Yes (Hospitalization, Other)
  Sender: FDA-Public Use
  Company Number: PHHY2010BR32961

PATIENT
  Sex: Male

DRUGS (10)
  1. DIOVAN [Suspect]
     Indication: HYPERTENSION
     Dosage: 80 MG, ONE TABLET DAILY
     Route: 048
  2. SIMVASTATIN [Concomitant]
     Indication: ANGIOPATHY
     Dosage: 40 MG,1 TABLET DAILY
     Route: 048
     Dates: start: 20100513
  3. SUSTRATE [Concomitant]
     Indication: ANGIOPATHY
     Dosage: 10 MG,1 TABLET DAILY
     Route: 048
     Dates: start: 20100513
  4. DAFLON [Concomitant]
     Indication: TYPE 2 DIABETES MELLITUS
     Dosage: 500 MG, 1 TABLET DAILY
     Route: 048
     Dates: start: 20100513
  5. ASPIRIN [Concomitant]
     Indication: ANGIOPATHY
     Dosage: 100 MG,1 TABLET DAILY
     Route: 048
     Dates: start: 20100513
  6. FUROSEMIDE [Concomitant]
     Indication: ANGIOPATHY
     Dosage: 40 MG, 1 TABLET DAILY
     Route: 048
     Dates: start: 20100513
  7. ALDACTONE [Concomitant]
     Indication: ANGIOPATHY
     Dosage: 25 MG, 1 TABLET DAILY
     Route: 048
     Dates: start: 20100513
  8. METFORMIN HCL [Concomitant]
     Indication: TYPE 2 DIABETES MELLITUS
     Dosage: 850 MG, TWO TABLETS DAILY
     Route: 048
     Dates: start: 20100513
  9. OMEPRAZOLE [Concomitant]
     Dosage: 40 MG, 1 TABLET DAILY
     Route: 048
     Dates: start: 20100513
  10. FERROUS SULFATE TAB [Concomitant]
     Indication: ANGIOPATHY
     Dosage: UNK
     Route: 048
     Dates: start: 20100513

REACTIONS (4)
  - ABDOMINAL PAIN UPPER [None]
  - CORONARY ARTERY OCCLUSION [None]
  - TREATMENT NONCOMPLIANCE [None]
  - VASCULAR GRAFT [None]
